FAERS Safety Report 6562770-6 (Version None)
Quarter: 2010Q1

REPORT INFORMATION
  Report Type: 
  Country: None (occurrence: None)
  Receive Date: 20100130
  Receipt Date: 20091120
  Transmission Date: 20100710
  Serious: No
  Sender: FDA-Public Use
  Company Number: US-ABBOTT-09P-163-0610214-00

PATIENT
  Sex: Male
  Weight: 78.088 kg

DRUGS (1)
  1. HUMIRA [Suspect]
     Indication: CROHN'S DISEASE
     Route: 058
     Dates: start: 20070901

REACTIONS (6)
  - ARTHRALGIA [None]
  - DIARRHOEA [None]
  - DRUG EFFECT DECREASED [None]
  - NECK PAIN [None]
  - PAIN IN EXTREMITY [None]
  - VITAMIN B12 DECREASED [None]
